FAERS Safety Report 25989405 (Version 1)
Quarter: 2025Q4

REPORT INFORMATION
  Report Type: Spontaneous
  Country: US (occurrence: US)
  Receive Date: 20251103
  Receipt Date: 20251103
  Transmission Date: 20260117
  Serious: Yes (Other)
  Sender: PFIZER
  Company Number: US-PFIZER INC-202500213344

PATIENT
  Age: 78 Year
  Sex: Female
  Weight: 69.85 kg

DRUGS (1)
  1. LEVOXYL [Suspect]
     Active Substance: LEVOTHYROXINE SODIUM
     Indication: Hypothyroidism
     Dosage: 1 PILL Q (EVERY) AM
     Route: 048
     Dates: start: 2024

REACTIONS (6)
  - Hyperthyroidism [Unknown]
  - Nervousness [Unknown]
  - Hypertension [Unknown]
  - Malaise [Unknown]
  - Blood thyroid stimulating hormone decreased [Unknown]
  - Therapeutic product effect increased [Unknown]

NARRATIVE: CASE EVENT DATE: 20250101
